FAERS Safety Report 10072299 (Version 1)
Quarter: 2014Q2

REPORT INFORMATION
  Report Type: Spontaneous
  Country: GB (occurrence: GB)
  Receive Date: 20140411
  Receipt Date: 20140411
  Transmission Date: 20141212
  Serious: Yes (Death, Hospitalization)
  Sender: FDA-Public Use
  Company Number: 2014SP001919

PATIENT
  Age: 73 Year
  Sex: Female
  Weight: 89.8 kg

DRUGS (19)
  1. DEXAMETHASONE [Suspect]
     Indication: PLASMA CELL MYELOMA
     Route: 048
     Dates: start: 20120216, end: 20140109
  2. DEXAMETHASONE [Suspect]
     Indication: PLASMA CELL MYELOMA
     Route: 041
     Dates: start: 20120216, end: 20140213
  3. ELOTUZUMAB [Suspect]
     Indication: PLASMA CELL MYELOMA
     Route: 041
     Dates: start: 20120216, end: 20140213
  4. LENALIDOMIDE [Suspect]
     Indication: PLASMA CELL MYELOMA
     Route: 048
     Dates: start: 20120216, end: 20140215
  5. ACICLOVIR [Concomitant]
     Dates: start: 20120216
  6. ALLOPURINOL [Concomitant]
     Dates: start: 20120216
  7. ASPIRINE [Concomitant]
     Dates: start: 20120315
  8. BINOCRIT [Concomitant]
     Dates: start: 201308
  9. CARBOMER [Concomitant]
     Dates: start: 20120921
  10. CIPROFLOXACIN [Concomitant]
     Indication: PROPHYLAXIS
     Dates: start: 201309
  11. AMOXICILLIN [Concomitant]
     Dates: start: 20131023
  12. POTASSIUM CLAVULANATE [Concomitant]
     Dates: start: 20131023
  13. CODEINE PHOSPHATE [Concomitant]
     Dates: start: 201211
  14. PARACETAMOL [Concomitant]
     Dates: start: 201211
  15. SULPHAMETHOXAZOLE [Concomitant]
     Dates: start: 20120216
  16. TRIMETHOPRIM [Concomitant]
     Dates: start: 20120216
  17. LANSOPRAZOLE [Concomitant]
     Dates: start: 20120216
  18. PAMIDRONATE [Concomitant]
     Dates: start: 20120405
  19. IRON SUCROSE [Concomitant]
     Dates: start: 20140212

REACTIONS (10)
  - Diarrhoea [Unknown]
  - Vomiting [Unknown]
  - Lower respiratory tract infection [Fatal]
  - Sepsis [Unknown]
  - Pancytopenia [Unknown]
  - Renal failure [Unknown]
  - Pneumonia [Unknown]
  - Rectal haemorrhage [Unknown]
  - Renal injury [Unknown]
  - Respiratory failure [Unknown]
